FAERS Safety Report 8272282-X (Version None)
Quarter: 2012Q1

REPORT INFORMATION
  Report Type: 
  Country: None (occurrence: None)
  Receive Date: 20120327
  Receipt Date: 20100322
  Transmission Date: 20120608
  Serious: Yes (Hospitalization)
  Sender: FDA-Public Use
  Company Number: PHEH2O10US03104

PATIENT
  Age: 23 Year
  Sex: Male
  Weight: 86 kg

DRUGS (1)
  1. GLEEVEC [Suspect]
     Indication: CHRONIC MYELOID LEUKAEMIA
     Dosage: 400 MG, QD, ORAL
     Route: 048
     Dates: start: 20091001

REACTIONS (7)
  - UPPER RESPIRATORY TRACT INFECTION [None]
  - COUGH [None]
  - LIVER FUNCTION TEST ABNORMAL [None]
  - HEPATIC STEATOSIS [None]
  - PYREXIA [None]
  - SINUS CONGESTION [None]
  - PNEUMONIA [None]
